FAERS Safety Report 19188324 (Version 1)
Quarter: 2021Q2

REPORT INFORMATION
  Report Type: Spontaneous
  Country: US (occurrence: US)
  Receive Date: 20210428
  Receipt Date: 20210428
  Transmission Date: 20210717
  Serious: Yes (Other)
  Sender: FDA-Public Use
  Company Number: NVSC2021US091472

PATIENT
  Age: 85 Year
  Sex: Female

DRUGS (1)
  1. HYDROCHLOROTHIAZIDE,TRIAMTERENE [Suspect]
     Active Substance: HYDROCHLOROTHIAZIDE\TRIAMTERENE
     Indication: PRODUCT USED FOR UNKNOWN INDICATION
     Dosage: UNK
     Route: 065

REACTIONS (9)
  - Blood pressure fluctuation [Unknown]
  - Loss of consciousness [Unknown]
  - Dyspnoea [Unknown]
  - Hypersensitivity [Unknown]
  - Fall [Unknown]
  - Vision blurred [Unknown]
  - Hypotension [Unknown]
  - Limb injury [Unknown]
  - Peripheral swelling [Unknown]
